FAERS Safety Report 4481743-0 (Version None)
Quarter: 2004Q4

REPORT INFORMATION
  Report Type: 
  Country: None (occurrence: None)
  Receive Date: 20041021
  Receipt Date: 20041012
  Transmission Date: 20050328
  Serious: Yes (Hospitalization)
  Sender: FDA-Public Use
  Company Number: US-MERCK-0410USA01744

PATIENT
  Age: 51 Year
  Sex: Male

DRUGS (4)
  1. VIOXX [Suspect]
     Indication: PAIN MANAGEMENT
     Route: 048
     Dates: start: 20000101
  2. TENORMIN [Concomitant]
     Route: 065
  3. VICODIN [Concomitant]
     Route: 048
  4. TEMAZEPAM [Concomitant]
     Route: 065

REACTIONS (1)
  - ANGINA PECTORIS [None]
